FAERS Safety Report 18615520 (Version 1)
Quarter: 2020Q4

REPORT INFORMATION
  Report Type: Spontaneous
  Country: FR (occurrence: FR)
  Receive Date: 20201215
  Receipt Date: 20201215
  Transmission Date: 20210114
  Serious: Yes (Hospitalization)
  Sender: FDA-Public Use
  Company Number: FR-JNJFOC-20201221780

PATIENT
  Age: 73 Year
  Sex: Male
  Weight: 119 kg

DRUGS (3)
  1. ELIQUIS [Concomitant]
     Active Substance: APIXABAN
     Route: 065
  2. MOPRAL [Concomitant]
     Active Substance: OMEPRAZOLE
  3. REMICADE [Suspect]
     Active Substance: INFLIXIMAB
     Indication: COLITIS
     Route: 042
     Dates: start: 2017, end: 202011

REACTIONS (2)
  - Meningoradiculitis [Recovering/Resolving]
  - Varicella zoster virus infection [Recovering/Resolving]

NARRATIVE: CASE EVENT DATE: 20201114
